FAERS Safety Report 8731479 (Version 2)
Quarter: 2012Q4

REPORT INFORMATION
  Report Type: 
  Country: US (occurrence: US)
  Receive Date: 20120820
  Receipt Date: 20121009
  Transmission Date: 20130627
  Serious: Yes (Other)
  Sender: FDA-Public Use
  Company Number: PHEH2012US016044

PATIENT
  Sex: Female

DRUGS (13)
  1. RECLAST [Suspect]
     Route: 042
  2. RECLAST [Suspect]
     Route: 042
  3. RECLAST [Suspect]
     Route: 042
  4. RECLAST [Suspect]
     Route: 042
     Dates: start: 20120514
  5. ZOMETA [Suspect]
     Indication: OSTEOPOROSIS
     Dosage: 4 mg
     Route: 042
     Dates: start: 20110309, end: 20110514
  6. PREDNISONE [Concomitant]
  7. CELLCEPT [Concomitant]
  8. OMEPRAZOLE [Concomitant]
  9. LOSARTAN [Concomitant]
  10. TACROLIMUS [Concomitant]
  11. LEVOTHYROXINE [Concomitant]
  12. ASPIRIN [Concomitant]
     Dosage: 81 mg, UNK
  13. DIGOXINE [Concomitant]

REACTIONS (1)
  - Tooth fracture [Not Recovered/Not Resolved]
